FAERS Safety Report 25584398 (Version 1)
Quarter: 2025Q3

REPORT INFORMATION
  Report Type: Spontaneous
  Country: US (occurrence: US)
  Receive Date: 20250721
  Receipt Date: 20250721
  Transmission Date: 20251021
  Serious: No
  Sender: AMGEN
  Company Number: US-AMGEN-USASP2025137686

PATIENT
  Age: 80 Year
  Sex: Female

DRUGS (2)
  1. ENBREL [Suspect]
     Active Substance: ETANERCEPT
     Indication: Psoriasis
     Dosage: 50 MILLIGRAM, Q2WK
     Route: 065
     Dates: start: 201008
  2. ENBREL [Suspect]
     Active Substance: ETANERCEPT
     Dosage: 50 MILLIGRAM, Q2WK
     Route: 065

REACTIONS (9)
  - Incorrect disposal of product [Unknown]
  - Incorrect dose administered by device [Unknown]
  - Accidental exposure to product [Unknown]
  - Device difficult to use [Unknown]
  - Device use error [Unknown]
  - Intentional product misuse [Unknown]
  - Dizziness [Unknown]
  - Injection site haemorrhage [Unknown]
  - Confusional state [Unknown]

NARRATIVE: CASE EVENT DATE: 20250707
